FAERS Safety Report 9641333 (Version 1)
Quarter: 2013Q4

REPORT INFORMATION
  Report Type: Spontaneous
  Country: US (occurrence: None)
  Receive Date: 20131022
  Receipt Date: 20131022
  Transmission Date: 20140711
  Serious: Yes (Hospitalization)
  Sender: FDA-Public Use
  Company Number: None

PATIENT
  Age: 84 Year
  Sex: Male
  Weight: 73 kg

DRUGS (5)
  1. XARELTO [Suspect]
     Indication: THROMBOSIS PROPHYLAXIS
     Dosage: 1 TABLET
     Route: 048
  2. METOPROLOL [Concomitant]
  3. PERCOCET [Concomitant]
  4. PREDNISONE [Concomitant]
  5. FLOMAX [Concomitant]

REACTIONS (3)
  - Post procedural contusion [None]
  - Post procedural complication [None]
  - Swelling [None]
